FAERS Safety Report 7880516-6 (Version None)
Quarter: 2011Q4

REPORT INFORMATION
  Report Type: 
  Country: None (occurrence: None)
  Receive Date: 20111101
  Receipt Date: 20111025
  Transmission Date: 20120403
  Serious: Yes (Death)
  Sender: FDA-Public Use
  Company Number: US-CELGENEUS-163-21880-11102863

PATIENT
  Sex: Male

DRUGS (9)
  1. METHADONE HCL [Concomitant]
     Dosage: 5 MILLIGRAM
     Route: 065
  2. CALTRATE + D [Concomitant]
     Dosage: 600
     Route: 065
  3. FLOMAX [Concomitant]
     Dosage: .4 MILLIGRAM
     Route: 065
  4. FUROSEMIDE [Concomitant]
     Dosage: 20 MILLIGRAM
     Route: 065
  5. PRILOSEC [Concomitant]
     Dosage: 40 MILLIGRAM
     Route: 065
  6. DEXAMETHASONE [Concomitant]
     Dosage: 1 MILLIGRAM
     Route: 065
  7. POTASSIUM [Concomitant]
     Dosage: 25 MILLIEQUIVALENTS
     Route: 065
  8. ASPIRIN ADLT [Concomitant]
     Dosage: 81 MILLIGRAM
     Route: 065
  9. REVLIMID [Suspect]
     Indication: MULTIPLE MYELOMA
     Dosage: 25 MILLIGRAM
     Route: 048
     Dates: start: 20100109

REACTIONS (1)
  - DEATH [None]
